FAERS Safety Report 12578580 (Version 1)
Quarter: 2016Q3

REPORT INFORMATION
  Report Type: Spontaneous
  Country: US (occurrence: None)
  Receive Date: 20160720
  Receipt Date: 20160720
  Transmission Date: 20161109
  Serious: Yes (Other)
  Sender: FDA-Public Use
  Company Number: None

PATIENT
  Sex: Female
  Weight: 81 kg

DRUGS (3)
  1. NEUTROGENA RAPID WRINKLE REPAIR MOISTURIZER SUNSCREEN BROAD SPECTRUM SPF30 [Suspect]
     Active Substance: AVOBENZONE\HOMOSALATE\OCTISALATE\OCTOCRYLENE
     Indication: THERAPEUTIC SKIN CARE TOPICAL
     Dosage: PEARL SIZE AMT, 1X/DAY, TOPIC
     Route: 061
     Dates: start: 201606, end: 20160626
  2. NEUTROGENA RAPID WRINKLE REPAIR NIGHT MOISTURIZER [Suspect]
     Active Substance: COSMETICS
     Indication: THERAPEUTIC SKIN CARE TOPICAL
     Route: 061
     Dates: start: 201606, end: 20160626
  3. NEUTROGENA DEEP CLEAN FACIAL CLEANSER [Suspect]
     Active Substance: COSMETICS
     Indication: THERAPEUTIC SKIN CARE TOPICAL
     Route: 061
     Dates: start: 201606, end: 20160626

REACTIONS (3)
  - Hypertension [None]
  - Neck pain [None]
  - Chemical injury [None]

NARRATIVE: CASE EVENT DATE: 201606
